FAERS Safety Report 9882263 (Version 1)
Quarter: 2014Q1

REPORT INFORMATION
  Report Type: Report from Study
  Country: CO (occurrence: CO)
  Receive Date: 20140207
  Receipt Date: 20140207
  Transmission Date: 20141002
  Serious: Yes (Hospitalization, Other)
  Sender: FDA-Public Use
  Company Number: CO-BAYER-2014-016392

PATIENT
  Age: 56 Year
  Sex: Female

DRUGS (2)
  1. NEXAVAR [Suspect]
     Indication: THYROID CANCER
     Dosage: 800 MG, QD
     Route: 048
     Dates: start: 20131218
  2. NEXAVAR [Suspect]
     Indication: METASTASES TO LUNG

REACTIONS (5)
  - Respiratory distress [None]
  - Off label use [None]
  - Cough [None]
  - Respiratory failure [None]
  - Pleural effusion [None]
